FAERS Safety Report 25379468 (Version 3)
Quarter: 2025Q3

REPORT INFORMATION
  Report Type: Spontaneous
  Country: JP (occurrence: JP)
  Receive Date: 20250530
  Receipt Date: 20250809
  Transmission Date: 20251021
  Serious: Yes (Death, Hospitalization, Other)
  Sender: ALEXION PHARMACEUTICALS
  Company Number: JP-ASTRAZENECA-250051308_013020_P_1

PATIENT
  Age: 80 Year
  Sex: Male
  Weight: 57 kg

DRUGS (7)
  1. TAGRISSO [Suspect]
     Active Substance: OSIMERTINIB
     Indication: Non-small cell lung cancer
     Dates: start: 20240604, end: 20241205
  2. TAGRISSO [Suspect]
     Active Substance: OSIMERTINIB
     Indication: Lung adenocarcinoma stage 0
  3. IMFINZI [Suspect]
     Active Substance: DURVALUMAB
     Indication: Non-small cell lung cancer
     Dates: start: 20230807, end: 20230927
  4. ERYTHROCIN [Concomitant]
     Active Substance: ERYTHROMYCIN LACTOBIONATE
  5. PREDNISOLONE [Concomitant]
     Active Substance: PREDNISOLONE
  6. ALENDRONATE [Concomitant]
     Active Substance: ALENDRONATE SODIUM
  7. LAFUTIDINE [Concomitant]
     Active Substance: LAFUTIDINE

REACTIONS (6)
  - Pulmonary toxicity [Fatal]
  - Pneumonitis [Unknown]
  - Thrombophlebitis migrans [Unknown]
  - Malignant pleural effusion [Unknown]
  - Hepatic enzyme increased [Unknown]
  - COVID-19 [Unknown]

NARRATIVE: CASE EVENT DATE: 20230927
